FAERS Safety Report 5913979-3 (Version None)
Quarter: 2008Q4

REPORT INFORMATION
  Report Type: 
  Country: None (occurrence: None)
  Receive Date: 20081009
  Receipt Date: 20080930
  Transmission Date: 20090506
  Serious: Yes (Hospitalization)
  Sender: FDA-Public Use
  Company Number: US-AVENTIS-200717333US

PATIENT
  Sex: Female
  Weight: 56.82 kg

DRUGS (8)
  1. KETEK [Suspect]
     Dates: start: 20050915, end: 20050920
  2. TYLENOL (CAPLET) [Suspect]
     Dosage: DOSE: 1000 MG 3-4
  3. ALCOHOL [Suspect]
     Dosage: DOSE: 20 BEER /WK
  4. ALCOHOL [Suspect]
     Dosage: DOSE: INCREASED
  5. HISTUSSIN HC [Concomitant]
     Dosage: DOSE: UNK
  6. PHENERGAN HCL [Concomitant]
     Dosage: DOSE: UNK
  7. SOMA [Concomitant]
     Dosage: DOSE: UNK
  8. ZYRTEC-D 12 HOUR [Concomitant]
     Dosage: DOSE: 1 TAB
     Route: 048

REACTIONS (19)
  - ABDOMINAL PAIN [None]
  - ASTHENIA [None]
  - CHROMATURIA [None]
  - CONSTIPATION [None]
  - DECREASED APPETITE [None]
  - FAECES DISCOLOURED [None]
  - FATIGUE [None]
  - HEPATIC ENZYME INCREASED [None]
  - HEPATITIS [None]
  - HYPERHIDROSIS [None]
  - IMMUNOLOGY TEST ABNORMAL [None]
  - INFLUENZA LIKE ILLNESS [None]
  - NAUSEA [None]
  - PAIN [None]
  - PRURITUS [None]
  - PYREXIA [None]
  - RASH ERYTHEMATOUS [None]
  - VOMITING [None]
  - WEIGHT DECREASED [None]
